FAERS Safety Report 20562602 (Version 1)
Quarter: 2022Q1

REPORT INFORMATION
  Report Type: Spontaneous
  Country: DE (occurrence: None)
  Receive Date: 20220307
  Receipt Date: 20220307
  Transmission Date: 20220423
  Serious: Yes (Other)
  Sender: FDA-Public Use
  Company Number: DE-ROCHE-3036374

PATIENT
  Sex: Female

DRUGS (3)
  1. TECENTRIQ [Suspect]
     Active Substance: ATEZOLIZUMAB
     Indication: Small cell lung cancer
     Dosage: IN COMBINATION WITH CARBOPLATIN AND TECENTRIQ, SIX CYCLES
     Route: 065
  2. CARBOPLATIN [Suspect]
     Active Substance: CARBOPLATIN
     Indication: Small cell lung cancer
     Dosage: IN COMBINATION WITH TECENTRIQ AND ETOPOSID, SIX CYCLES
     Route: 065
  3. ETOPOSIDE [Suspect]
     Active Substance: ETOPOSIDE
     Indication: Small cell lung cancer
     Dosage: IN COMBINATION WITH CARBOPLATIN AND TECENTRIQ, SIX CYCLES
     Route: 065

REACTIONS (2)
  - Haemorrhagic hepatic cyst [Unknown]
  - Liver sarcoidosis [Not Recovered/Not Resolved]
